FAERS Safety Report 9373589 (Version 1)
Quarter: 2013Q2

REPORT INFORMATION
  Report Type: Spontaneous
  Country: DE (occurrence: DE)
  Receive Date: 20130627
  Receipt Date: 20130627
  Transmission Date: 20140414
  Serious: Yes (Life-Threatening, Hospitalization)
  Sender: FDA-Public Use
  Company Number: GXKR2013DE002203

PATIENT
  Sex: 0

DRUGS (3)
  1. METFORMIN [Suspect]
     Dosage: DAILY DOSE: 3 G GRAM(S) EVERY DAYS
     Route: 048
     Dates: end: 20130226
  2. ATENOLOL [Concomitant]
     Route: 048
  3. EUTHYROX [Concomitant]
     Dosage: DAILY DOSE: 1 DF DOSAGE FORM EVERY DAYS
     Route: 048

REACTIONS (5)
  - Renal failure [Unknown]
  - Shock [Unknown]
  - Dehydration [Unknown]
  - Lactic acidosis [Unknown]
  - Diarrhoea [Unknown]
